FAERS Safety Report 7397792-9 (Version None)
Quarter: 2011Q2

REPORT INFORMATION
  Report Type: 
  Country: None (occurrence: None)
  Receive Date: 20110406
  Receipt Date: 20110331
  Transmission Date: 20111010
  Serious: Yes (Hospitalization)
  Sender: FDA-Public Use
  Company Number: GB-PFIZER INC-2011072493

PATIENT
  Age: 63 Year
  Sex: Female

DRUGS (2)
  1. ATENOLOL [Suspect]
     Dosage: 50 MG DAILY
  2. SUTENT [Suspect]
     Dosage: 50 MG DAILY
     Dates: start: 20110227

REACTIONS (2)
  - BRADYCARDIA [None]
  - SUPRAVENTRICULAR TACHYCARDIA [None]
